FAERS Safety Report 4359830-7 (Version None)
Quarter: 2004Q2

REPORT INFORMATION
  Report Type: 
  Country: None (occurrence: None)
  Receive Date: 20040514
  Receipt Date: 20040430
  Transmission Date: 20050107
  Serious: Yes (Other)
  Sender: FDA-Public Use
  Company Number: 2004029622

PATIENT
  Sex: Male
  Weight: 83.9154 kg

DRUGS (3)
  1. DILANTIN KAPSEAL [Suspect]
     Indication: EPILEPSY
     Dosage: 500 MG (DAILY), ORAL
     Route: 048
     Dates: start: 19800101
  2. PHENYTOIN [Suspect]
     Indication: EPILEPSY
     Dosage: 500 MG (DAILY)
     Dates: start: 20030801
  3. GABAPENTIN [Concomitant]

REACTIONS (3)
  - CONVULSION [None]
  - ELECTROENCEPHALOGRAM ABNORMAL [None]
  - PHARMACEUTICAL PRODUCT COMPLAINT [None]
